FAERS Safety Report 8071469-9 (Version None)
Quarter: 2012Q1

REPORT INFORMATION
  Report Type: 
  Country: None (occurrence: None)
  Receive Date: 20120119
  Receipt Date: 20120111
  Transmission Date: 20120608
  Serious: Yes (Life-Threatening, Other)
  Sender: FDA-Public Use
  Company Number: MSTR-NO-1111S-0262

PATIENT
  Age: 61 Year
  Sex: Male

DRUGS (4)
  1. ZOLEDRONIC ACID HYDRATE (ZOLEDRONIC ACID) [Concomitant]
  2. METASTRON [Suspect]
     Indication: METASTATIC PAIN
     Dosage: 98 MBQ, SINGLE DOSE, INTRAVENOUS
     Route: 042
     Dates: start: 20090625, end: 20090625
  3. OXYCODONE HCL [Concomitant]
  4. ETODOLAC [Concomitant]

REACTIONS (5)
  - PLATELET COUNT DECREASED [None]
  - NEOPLASM PROGRESSION [None]
  - DISSEMINATED INTRAVASCULAR COAGULATION [None]
  - ANAEMIA [None]
  - BLADDER CANCER [None]
